FAERS Safety Report 6120892-8 (Version None)
Quarter: 2009Q1

REPORT INFORMATION
  Report Type: 
  Country: None (occurrence: None)
  Receive Date: 20090317
  Receipt Date: 20090216
  Transmission Date: 20090719
  Serious: No
  Sender: FDA-Public Use
  Company Number: US-BAYER-200814456BCC

PATIENT
  Age: 74 Year
  Sex: Male
  Weight: 89 kg

DRUGS (5)
  1. ALEVE [Suspect]
     Indication: BACK PAIN
     Dosage: TOTAL DAILY DOSE: 220 MG  UNIT DOSE: 220 MG
  2. ZIAC [Concomitant]
  3. NEXIUM [Concomitant]
  4. WALGREENS ASPIRIN [Concomitant]
  5. CLARITIN [Concomitant]

REACTIONS (1)
  - BLEEDING TIME PROLONGED [None]
